FAERS Safety Report 25945794 (Version 1)
Quarter: 2025Q4

REPORT INFORMATION
  Report Type: Spontaneous
  Country: EU (occurrence: EU)
  Receive Date: 20251021
  Receipt Date: 20251021
  Transmission Date: 20260117
  Serious: Yes (Life-Threatening, Hospitalization, Other)
  Sender: SANDOZ
  Company Number: EU-DSJP-DSE-2023-103215

PATIENT
  Sex: Female
  Weight: 2.2 kg

DRUGS (4)
  1. ASPIRIN [Suspect]
     Active Substance: ASPIRIN
     Indication: Foetal exposure during pregnancy
     Dosage: MATERNAL EXPOSURE DURING PREGNANCY: UNK
     Route: 064
  2. AMLODIPINE [Suspect]
     Active Substance: AMLODIPINE BESYLATE
     Indication: Hypertension
     Dosage: 0.02 MG/KG, ONCE/SINGLE
     Route: 065
  3. NIFEDIPINE [Suspect]
     Active Substance: NIFEDIPINE
     Indication: Foetal exposure during pregnancy
     Dosage: MATERNAL EXPOSURE DURING PREGNANCY: UNK
     Route: 064
  4. OLMESARTAN MEDOXOMIL [Suspect]
     Active Substance: OLMESARTAN MEDOXOMIL
     Indication: Maternal exposure during pregnancy
     Dosage: 40 MG, QD
     Route: 064

REACTIONS (15)
  - Hypocalvaria [Unknown]
  - Bone density decreased [Not Recovered/Not Resolved]
  - Joint contracture [Unknown]
  - Renal haemorrhage [Unknown]
  - Differentiation syndrome [Unknown]
  - Blood aldosterone increased [Unknown]
  - Bone disorder [Unknown]
  - Hypertension [Unknown]
  - Renal tubular dysfunction [Unknown]
  - Foetal exposure during pregnancy [Unknown]
  - Drug ineffective [Unknown]
  - Hypertension neonatal [Not Recovered/Not Resolved]
  - Renal impairment neonatal [Not Recovered/Not Resolved]
  - Low birth weight baby [Unknown]
  - Premature baby [Unknown]
